FAERS Safety Report 17445927 (Version 2)
Quarter: 2020Q4

REPORT INFORMATION
  Report Type: Report from Study
  Country: FR (occurrence: FR)
  Receive Date: 20200221
  Receipt Date: 20201210
  Transmission Date: 20210113
  Serious: Yes (Death)
  Sender: FDA-Public Use
  Company Number: FR-PFIZER INC-2020077522

PATIENT
  Age: 84 Year
  Sex: Female
  Weight: 55 kg

DRUGS (3)
  1. LETROZOLE. [Concomitant]
     Active Substance: LETROZOLE
     Indication: HORMONE THERAPY
     Dosage: 2.5 MG
     Route: 048
     Dates: start: 20200102
  2. IBRANCE [Suspect]
     Active Substance: PALBOCICLIB
     Dosage: 100 MG, CYCLIC, 3 WEEK ON 4
     Dates: start: 20200109, end: 20200129
  3. IBRANCE [Suspect]
     Active Substance: PALBOCICLIB
     Dosage: 100 MG, CYCLIC, 3 WEEK ON 4
     Dates: start: 20200206, end: 20200216

REACTIONS (1)
  - Death [Fatal]

NARRATIVE: CASE EVENT DATE: 20200216
